FAERS Safety Report 11823680 (Version 7)
Quarter: 2018Q1

REPORT INFORMATION
  Report Type: Report from Study
  Country: US (occurrence: US)
  Receive Date: 20151210
  Receipt Date: 20180220
  Transmission Date: 20180508
  Serious: Yes (Hospitalization, Other)
  Sender: FDA-Public Use
  Company Number: US-SA-2015SA148864

PATIENT
  Age: 36 Year
  Sex: Female

DRUGS (2)
  1. AUBAGIO [Suspect]
     Active Substance: TERIFLUNOMIDE
     Indication: MULTIPLE SCLEROSIS
     Route: 048
     Dates: start: 20150911, end: 20150918
  2. AUBAGIO [Suspect]
     Active Substance: TERIFLUNOMIDE
     Indication: MULTIPLE SCLEROSIS
     Route: 048
     Dates: start: 20150919, end: 20151106

REACTIONS (16)
  - Weight decreased [Unknown]
  - Liver injury [Unknown]
  - Multiple sclerosis relapse [Not Recovered/Not Resolved]
  - Gait disturbance [Unknown]
  - Constipation [Unknown]
  - Hepatic failure [Unknown]
  - Vomiting [Unknown]
  - Hepatic enzyme increased [Not Recovered/Not Resolved]
  - Visual field defect [Unknown]
  - Nausea [Unknown]
  - Alopecia [Unknown]
  - Muscle atrophy [Unknown]
  - Functional gastrointestinal disorder [Unknown]
  - Central nervous system lesion [Unknown]
  - Asthenia [Unknown]
  - Blood glucose increased [Unknown]

NARRATIVE: CASE EVENT DATE: 201509
